FAERS Safety Report 6085887-1 (Version None)
Quarter: 2009Q1

REPORT INFORMATION
  Report Type: 
  Country: None (occurrence: None)
  Receive Date: 20090220
  Receipt Date: 20090218
  Transmission Date: 20090719
  Serious: Yes (Other)
  Sender: FDA-Public Use
  Company Number: US-ASTRAZENECA-2009UW04637

PATIENT
  Sex: Female
  Weight: 81.6 kg

DRUGS (4)
  1. CRESTOR [Suspect]
     Route: 048
  2. BLOOD PRESSURE [Concomitant]
  3. FLOVENT [Concomitant]
  4. WATER PILL [Concomitant]

REACTIONS (1)
  - RETINAL TEAR [None]
